FAERS Safety Report 7082896-0 (Version None)
Quarter: 2010Q4

REPORT INFORMATION
  Report Type: 
  Country: None (occurrence: None)
  Receive Date: 20101104
  Receipt Date: 20101026
  Transmission Date: 20110411
  Serious: Yes (Death, Other)
  Sender: FDA-Public Use
  Company Number: PHHY2010PL71033

PATIENT
  Sex: Male
  Weight: 71 kg

DRUGS (1)
  1. SANDOSTATIN LAR [Suspect]
     Indication: CARCINOID SYNDROME
     Dosage: UNK
     Dates: start: 20090211, end: 20091118

REACTIONS (3)
  - DEATH [None]
  - ILEOJEJUNAL BYPASS [None]
  - SMALL INTESTINAL OBSTRUCTION [None]
